FAERS Safety Report 8078619-9 (Version None)
Quarter: 2012Q1

REPORT INFORMATION
  Report Type: 
  Country: None (occurrence: None)
  Receive Date: 20120124
  Receipt Date: 20120118
  Transmission Date: 20120608
  Serious: Yes (Hospitalization)
  Sender: FDA-Public Use
  Company Number: IMP_05717_2012

PATIENT
  Age: 34 Year
  Sex: Male

DRUGS (1)
  1. METFORMIN HCL [Suspect]
     Indication: PRODUCT USED FOR UNKNOWN INDICATION
     Dosage: (170 METFORMIN 850-MG TABLETS (144 500 MG))

REACTIONS (13)
  - HEART RATE INCREASED [None]
  - LACTIC ACIDOSIS [None]
  - SUICIDE ATTEMPT [None]
  - HYPOGLYCAEMIA [None]
  - RESPIRATORY RATE INCREASED [None]
  - BLOOD GLUCOSE INCREASED [None]
  - TOXICITY TO VARIOUS AGENTS [None]
  - HYPOTHERMIA [None]
  - HAEMODIALYSIS [None]
  - INCORRECT DOSE ADMINISTERED [None]
  - RENAL FAILURE ACUTE [None]
  - METABOLIC ACIDOSIS [None]
  - BLOOD SODIUM INCREASED [None]
